FAERS Safety Report 10954573 (Version 2)
Quarter: 2015Q2

REPORT INFORMATION
  Report Type: Spontaneous
  Country: US (occurrence: US)
  Receive Date: 20150325
  Receipt Date: 20150413
  Transmission Date: 20150821
  Serious: No
  Sender: FDA-Public Use
  Company Number: US-GLAXOSMITHKLINE-US2015036146

PATIENT
  Age: 53 Year

DRUGS (3)
  1. LAMICTAL XR [Suspect]
     Active Substance: LAMOTRIGINE
     Indication: ELECTROENCEPHALOGRAM ABNORMAL
  2. LAMICTAL XR [Suspect]
     Active Substance: LAMOTRIGINE
     Indication: CEREBRAL VASOCONSTRICTION
     Dosage: 250 MG, QD
     Route: 048
     Dates: start: 201008
  3. NEURONTIN [Concomitant]
     Active Substance: GABAPENTIN

REACTIONS (4)
  - Therapeutic response unexpected [Unknown]
  - Off label use [Unknown]
  - Nasopharyngitis [Recovering/Resolving]
  - Nasal congestion [Recovering/Resolving]

NARRATIVE: CASE EVENT DATE: 20150316
